FAERS Safety Report 4344678-X (Version None)
Quarter: 2004Q2

REPORT INFORMATION
  Report Type: 
  Country: None (occurrence: None)
  Receive Date: 20040419
  Receipt Date: 20040405
  Transmission Date: 20050107
  Serious: Yes (Death, Hospitalization)
  Sender: FDA-Public Use
  Company Number: 2003020239

PATIENT
  Age: 32 Year
  Sex: Male
  Weight: 90 kg

DRUGS (12)
  1. VFEND [Suspect]
     Indication: NEUTROPENIC SEPSIS
     Dosage: 800 MG, BID, ORAL
     Route: 048
     Dates: start: 20030503, end: 20030506
  2. PIP/TAZO (PIPERACILLIN SODIUM, TAZOBACTAM SODIUM) [Concomitant]
  3. AMIKACIN SULFATE [Concomitant]
  4. VANCOMYCIN [Concomitant]
  5. MEROPENEM [Concomitant]
  6. LEVOFLOXACIN [Concomitant]
  7. URSODEOXYCHOLIC ACID [Concomitant]
  8. OXCARBAZEPINE [Concomitant]
  9. NEUROGEN (CHLORDIAZEPOXIDE, METAMIZOLE SODIUM MONOHYDRATE, THIAMI HYDR [Concomitant]
  10. POTASSIUM CHLORIDE [Concomitant]
  11. METOPROLOL TARTRATE [Concomitant]
  12. FUROSEMIDE [Concomitant]

REACTIONS (5)
  - CIRCULATORY COLLAPSE [None]
  - DYSPNOEA [None]
  - HAEMODYNAMIC INSTABILITY [None]
  - HYPERKALAEMIA [None]
  - VENTRICULAR FIBRILLATION [None]
